FAERS Safety Report 20047126 (Version 1)
Quarter: 2021Q4

REPORT INFORMATION
  Report Type: Spontaneous
  Country: FR (occurrence: FR)
  Receive Date: 20211109
  Receipt Date: 20211109
  Transmission Date: 20220303
  Serious: Yes (Hospitalization)
  Sender: FDA-Public Use
  Company Number: FR-LUPIN PHARMACEUTICALS INC.-2021-21708

PATIENT
  Age: 76 Year
  Sex: Female

DRUGS (6)
  1. HYDROXYCHLOROQUINE [Suspect]
     Active Substance: HYDROXYCHLOROQUINE
     Indication: COVID-19
     Dosage: UNK
     Route: 065
     Dates: start: 20200429, end: 20200507
  2. COVID-19 CONVALESCENT PLASMA [Suspect]
     Active Substance: COVID-19 CONVALESCENT PLASMA
     Indication: SARS-CoV-2 viraemia
     Dosage: UNK (4 X 200ML)
     Route: 065
     Dates: start: 20200612, end: 20200615
  3. REMDESIVIR [Suspect]
     Active Substance: REMDESIVIR
     Indication: SARS-CoV-2 viraemia
     Dosage: 200 MILLIGRAM, QD (ON DAY 1)
     Route: 065
  4. REMDESIVIR [Suspect]
     Active Substance: REMDESIVIR
     Dosage: 100 MILLIGRAM, QD
     Route: 065
  5. RITUXIMAB [Concomitant]
     Active Substance: RITUXIMAB
     Indication: Chronic lymphocytic leukaemia
     Dosage: 4 DOSAGE FORM (RECEIVED 4 DOSES)
     Route: 065
  6. BENDAMUSTINE [Concomitant]
     Active Substance: BENDAMUSTINE
     Indication: Chronic lymphocytic leukaemia
     Dosage: 4 DOSAGE FORM (RECEIVED 4 DOSES)
     Route: 065

REACTIONS (2)
  - Drug ineffective for unapproved indication [Unknown]
  - Off label use [Unknown]
